FAERS Safety Report 16157417 (Version 3)
Quarter: 2019Q3

REPORT INFORMATION
  Report Type: Spontaneous
  Country: US (occurrence: US)
  Receive Date: 20190404
  Receipt Date: 20190725
  Transmission Date: 20191004
  Serious: No
  Sender: FDA-Public Use
  Company Number: US-PFIZER INC-2019112011

PATIENT
  Age: 63 Year
  Sex: Female
  Weight: 63.49 kg

DRUGS (2)
  1. PREMARIN [Suspect]
     Active Substance: ESTROGENS, CONJUGATED
     Indication: ATROPHY
     Dosage: 0.5 MG, 2X/WEEK
  2. PREMARIN [Suspect]
     Active Substance: ESTROGENS, CONJUGATED
     Indication: HYSTERECTOMY
     Dosage: 1 G, 2X/WEEK (INSERT ONE GRAM VAGINALLY 2 NIGHTS PER WEEK, WHEN IN BED)
     Route: 067
     Dates: start: 20190304

REACTIONS (4)
  - Off label use [Unknown]
  - Mood swings [Unknown]
  - Vaginal infection [Unknown]
  - Vaginal disorder [Unknown]
